FAERS Safety Report 4675313-9 (Version None)
Quarter: 2005Q2

REPORT INFORMATION
  Report Type: 
  Country: None (occurrence: None)
  Receive Date: 20050527
  Receipt Date: 20050518
  Transmission Date: 20051028
  Serious: Yes (Hospitalization)
  Sender: FDA-Public Use
  Company Number: NO-ABBOTT-05P-122-0300824-00

PATIENT
  Sex: Male

DRUGS (5)
  1. WARFARIN [Suspect]
     Indication: ATRIAL FIBRILLATION
     Route: 048
     Dates: start: 20040510
  2. CANDESARTAN CILEXETIL [Suspect]
     Indication: ATRIAL FIBRILLATION
     Route: 048
     Dates: start: 20040609, end: 20041208
  3. CANDESARTAN CILEXETIL [Suspect]
     Route: 048
     Dates: start: 20040519, end: 20040609
  4. METOPROLOL SUCCINATE [Concomitant]
     Indication: ATRIAL FIBRILLATION
     Route: 048
     Dates: start: 20040510, end: 20040616
  5. METOPROLOL SUCCINATE [Concomitant]
     Route: 048
     Dates: start: 20040617

REACTIONS (2)
  - MANTLE CELL LYMPHOMA [None]
  - RECTAL HAEMORRHAGE [None]
